FAERS Safety Report 5630946-8 (Version None)
Quarter: 2008Q1

REPORT INFORMATION
  Report Type: 
  Country: None (occurrence: None)
  Receive Date: 20080219
  Receipt Date: 20080212
  Transmission Date: 20080703
  Serious: No
  Sender: FDA-Public Use
  Company Number: DE-AVENTIS-200810401DE

PATIENT
  Age: 40 Year
  Sex: Female

DRUGS (1)
  1. ARAVA [Suspect]
     Dosage: DOSE: NOT REPORTED
     Route: 048
     Dates: end: 20080101

REACTIONS (1)
  - DRUG EXPOSURE DURING PREGNANCY [None]
